FAERS Safety Report 5046796-X (Version None)
Quarter: 2006Q3

REPORT INFORMATION
  Report Type: 
  Country: None (occurrence: None)
  Receive Date: 20060705
  Receipt Date: 20060705
  Transmission Date: 20061208
  Serious: Yes (Hospitalization)
  Sender: FDA-Public Use
  Company Number: None

PATIENT
  Age: 60 Year
  Sex: Male
  Weight: 106 kg

DRUGS (49)
  1. TRASYLOL [Suspect]
     Indication: HAEMORRHAGE
     Dosage: TEST DOSE , 200 ML BOLUS AND THEN 50 ML /HR X 4 HRS
     Route: 040
     Dates: start: 20060523
  2. TRASYLOL [Suspect]
     Indication: PROPHYLAXIS
     Dosage: TEST DOSE , 200 ML BOLUS AND THEN 50 ML /HR X 4 HRS
     Route: 040
     Dates: start: 20060523
  3. ALBUMIN [Concomitant]
  4. COMBIVENT [Concomitant]
  5. COREG [Concomitant]
  6. NITROPRESS [Concomitant]
  7. AMIODARONE HCL [Concomitant]
  8. DOBUTAMINE HCL [Concomitant]
  9. DOCUSATE [Concomitant]
  10. ASPIRIN [Concomitant]
  11. HESPAN [Concomitant]
  12. MAGNESIUM SULFATE [Concomitant]
  13. METOPROLOL TARTRATE [Concomitant]
  14. MILRINONE [Concomitant]
  15. MORPHINE [Concomitant]
  16. NITRO-BID 2% [Concomitant]
  17. PEPCID [Concomitant]
  18. POTASSIUM CHLORIDE [Concomitant]
  19. NOVOLIN R [Concomitant]
  20. PRECEDEX [Concomitant]
  21. RESTORIL [Concomitant]
  22. ZOFRAN [Concomitant]
  23. XANAX [Concomitant]
  24. AMBIEN [Concomitant]
  25. ANCEF [Concomitant]
  26. BACTROBAN [Concomitant]
  27. BUMEX [Concomitant]
  28. CALCIUM CHLORIDE [Concomitant]
  29. CARDIZEM [Concomitant]
  30. DEMEROL [Concomitant]
  31. FOLTX [Concomitant]
  32. HEPARIN [Concomitant]
  33. HIBICLENS [Concomitant]
  34. LANOXIN [Concomitant]
  35. LEVAQUIN [Concomitant]
  36. LIDOCAINE [Concomitant]
  37. LISINOPRIL [Concomitant]
  38. MUCOMYST [Concomitant]
  39. NORVASC [Concomitant]
  40. PANCURONIUM [Concomitant]
  41. PHENERGAN HCL [Concomitant]
  42. PROTAMINE SULFATE [Concomitant]
  43. PAPAVERINE [Concomitant]
  44. SUBLIAMAZE [Concomitant]
  45. URISPAS [Concomitant]
  46. VANCOMYCIN [Concomitant]
  47. VERSED [Concomitant]
  48. ZOCOR [Concomitant]
  49. ZOSYN [Concomitant]

REACTIONS (5)
  - BLOOD CREATININE INCREASED [None]
  - EJECTION FRACTION DECREASED [None]
  - HAEMODYNAMIC INSTABILITY [None]
  - RENAL IMPAIRMENT [None]
  - URINE OUTPUT DECREASED [None]
